FAERS Safety Report 23318576 (Version 3)
Quarter: 2024Q1

REPORT INFORMATION
  Report Type: Spontaneous
  Country: JP (occurrence: JP)
  Receive Date: 20231220
  Receipt Date: 20240313
  Transmission Date: 20240410
  Serious: Yes (Hospitalization)
  Sender: FDA-Public Use
  Company Number: JP-MTPC-MTPC2023-0029716

PATIENT

DRUGS (3)
  1. EDARAVONE [Suspect]
     Active Substance: EDARAVONE
     Indication: Amyotrophic lateral sclerosis
     Dosage: UNK
     Route: 048
  2. EDARAVONE [Suspect]
     Active Substance: EDARAVONE
     Indication: Amyotrophic lateral sclerosis
     Dosage: UNK
     Route: 048
  3. RILUZOLE [Concomitant]
     Active Substance: RILUZOLE
     Dosage: UNK
     Route: 065

REACTIONS (2)
  - Influenza [Recovering/Resolving]
  - Dyspnoea [Recovered/Resolved with Sequelae]
